FAERS Safety Report 8339531-0 (Version None)
Quarter: 2012Q2

REPORT INFORMATION
  Report Type: 
  Country: None (occurrence: None)
  Receive Date: 20120507
  Receipt Date: 20120503
  Transmission Date: 20120825
  Serious: Yes (Life-Threatening, Hospitalization)
  Sender: FDA-Public Use
  Company Number: US-B.I. PHARMACEUTICALS,INC./RIDGEFIELD-2012-BP-04363BP

PATIENT
  Sex: Male
  Weight: 81.64 kg

DRUGS (6)
  1. LISINOPRIL [Concomitant]
  2. COMBIVENT [Concomitant]
  3. DIOXIN [Concomitant]
  4. SPIRIVA [Suspect]
     Indication: CHRONIC OBSTRUCTIVE PULMONARY DISEASE
     Dosage: 18 MCG
     Route: 055
     Dates: start: 20111201
  5. METFORMIN HCL [Concomitant]
  6. METOPROLOL TARTRATE [Concomitant]

REACTIONS (4)
  - RESPIRATORY FAILURE [None]
  - PNEUMONIA ASPIRATION [None]
  - MYOCARDIAL INFARCTION [None]
  - CARDIAC FAILURE CONGESTIVE [None]
